FAERS Safety Report 8543083-X (Version None)
Quarter: 2012Q3

REPORT INFORMATION
  Report Type: 
  Country: None (occurrence: None)
  Receive Date: 20120727
  Receipt Date: 20110715
  Transmission Date: 20120928
  Serious: No
  Sender: FDA-Public Use
  Company Number: US-MYLANLABS-2011S1014823

PATIENT

DRUGS (1)
  1. LEVOTHYROXINE SODIUM [Suspect]

REACTIONS (3)
  - LYMPHADENOPATHY [None]
  - RASH [None]
  - NECK PAIN [None]
